FAERS Safety Report 25326462 (Version 1)
Quarter: 2025Q2

REPORT INFORMATION
  Report Type: Spontaneous
  Country: CN (occurrence: CN)
  Receive Date: 20250516
  Receipt Date: 20250516
  Transmission Date: 20250716
  Serious: Yes (Other)
  Sender: MERCK SHARP & DOHME LLC
  Company Number: CN-009507513-2283933

PATIENT
  Age: 66 Year
  Sex: Male
  Weight: 55 kg

DRUGS (2)
  1. KEYTRUDA [Suspect]
     Active Substance: PEMBROLIZUMAB
     Indication: Oesophageal carcinoma
     Route: 041
     Dates: start: 20250423, end: 20250423
  2. SODIUM CHLORIDE [Concomitant]
     Active Substance: SODIUM CHLORIDE
     Route: 041
     Dates: start: 20250423, end: 20250423

REACTIONS (2)
  - Blood pressure decreased [Recovering/Resolving]
  - Pruritus [Recovering/Resolving]

NARRATIVE: CASE EVENT DATE: 20250423
